FAERS Safety Report 8173791-4 (Version None)
Quarter: 2012Q1

REPORT INFORMATION
  Report Type: 
  Country: None (occurrence: None)
  Receive Date: 20120229
  Receipt Date: 20120220
  Transmission Date: 20120608
  Serious: Yes (Hospitalization, Other)
  Sender: FDA-Public Use
  Company Number: IE-ELI_LILLY_AND_COMPANY-IE201202006352

PATIENT
  Sex: Female

DRUGS (4)
  1. CLONFOLIC [Concomitant]
  2. ASPIRIN [Concomitant]
  3. METHOTREXATE [Concomitant]
  4. FORTEO [Suspect]
     Indication: OSTEOPOROSIS
     Dosage: 20 UG, UNK
     Dates: start: 20111007

REACTIONS (3)
  - SYNCOPE [None]
  - LACERATION [None]
  - HYPERTENSION [None]
